FAERS Safety Report 18050361 (Version 1)
Quarter: 2020Q3

REPORT INFORMATION
  Report Type: Spontaneous
  Country: NL (occurrence: FR)
  Receive Date: 20200721
  Receipt Date: 20200721
  Transmission Date: 20201103
  Serious: Yes (Hospitalization)
  Sender: FDA-Public Use
  Company Number: FR-FRESENIUS KABI-FK202007260

PATIENT
  Age: 65 Year
  Sex: Male

DRUGS (2)
  1. LINEZOLID (MANUFACTURER UNKNOWN) [Suspect]
     Active Substance: LINEZOLID
     Indication: OSTEITIS
     Dosage: 1200 MG DAILY
     Route: 048
     Dates: start: 20200528, end: 20200529
  2. CEFTRIAXONE SODIUM. [Suspect]
     Active Substance: CEFTRIAXONE SODIUM
     Indication: OSTEITIS
     Dosage: 2 G DAILY
     Route: 042
     Dates: start: 20200528, end: 20200529

REACTIONS (3)
  - Erythema [Recovered/Resolved]
  - Pruritus [Recovered/Resolved]
  - Localised oedema [Recovered/Resolved]

NARRATIVE: CASE EVENT DATE: 20200529
